FAERS Safety Report 7637501-9 (Version None)
Quarter: 2011Q3

REPORT INFORMATION
  Report Type: 
  Country: None (occurrence: None)
  Receive Date: 20110726
  Receipt Date: 20110714
  Transmission Date: 20111222
  Serious: Yes (Hospitalization)
  Sender: FDA-Public Use
  Company Number: PHHY2011US47370

PATIENT
  Sex: Male
  Weight: 58.957 kg

DRUGS (4)
  1. BACLOFEN [Concomitant]
     Dosage: 10 MG, TID
     Route: 048
  2. FAMPRIDINE [Concomitant]
     Dosage: 10 MG, BID
  3. GILENYA [Suspect]
     Indication: MULTIPLE SCLEROSIS
     Dosage: 0.5 MG, DAILY
     Route: 048
     Dates: start: 20110126
  4. GILENYA [Suspect]
     Dosage: 0.5 MG, DAILY
     Route: 048

REACTIONS (22)
  - PYREXIA [None]
  - PAIN [None]
  - MULTIPLE SCLEROSIS RELAPSE [None]
  - MUSCULAR WEAKNESS [None]
  - BUNDLE BRANCH BLOCK RIGHT [None]
  - BLOOD BILIRUBIN INCREASED [None]
  - PLATELET COUNT DECREASED [None]
  - HEART RATE INCREASED [None]
  - PNEUMONIA [None]
  - COUGH [None]
  - GAIT DISTURBANCE [None]
  - DYSPNOEA [None]
  - PARESIS [None]
  - GENERAL PHYSICAL HEALTH DETERIORATION [None]
  - WHITE BLOOD CELL COUNT DECREASED [None]
  - ASTHENIA [None]
  - CEREBELLAR SYNDROME [None]
  - UPPER MOTOR NEURONE LESION [None]
  - CONSTIPATION [None]
  - MUSCLE SPASTICITY [None]
  - HYPOAESTHESIA [None]
  - LYMPHOCYTE COUNT DECREASED [None]
